FAERS Safety Report 9016374 (Version 1)
Quarter: 2013Q1

REPORT INFORMATION
  Report Type: Spontaneous
  Country: US (occurrence: US)
  Receive Date: 20130116
  Receipt Date: 20130116
  Transmission Date: 20140127
  Serious: Yes (Life-Threatening, Other)
  Sender: FDA-Public Use
  Company Number: US-009507513-1301USA003482

PATIENT
  Age: 69 Year
  Sex: Female

DRUGS (17)
  1. SINGULAIR [Suspect]
     Dosage: 10 MG, DAILY
     Route: 048
  2. PROTELOS [Suspect]
     Indication: ASTHMA
     Dosage: 1 SACHET, 1X/DAY
     Route: 048
  3. PANTOPRAZOLE SODIUM [Suspect]
     Indication: OSTEOPOROSIS
     Dosage: 40 MG, 1X/DAY
  4. XOLAIR [Suspect]
     Dosage: 300 MG, EVERY TWO WEEKS SUBCUTANEOUS
  5. XOLAIR [Suspect]
     Dosage: UNK, (DOSE REDUCED)
  6. XOLAIR [Suspect]
     Dosage: UNK, (DOSE INCREASED)
  7. PREDNISONE [Suspect]
     Dosage: 20 MG, DAILY
     Route: 048
  8. BRICANYL [Suspect]
     Dosage: 5 MG, 6X/DAY RESPIRATORY (INHALATION)
  9. ALDACTONE TABLETS [Suspect]
     Dosage: 25 MG, DAILY
  10. SYMBICORT [Suspect]
     Dosage: 2 PUFFS/DAY RESPIRATORY (INHALATION)
  11. FENOFIBRATE [Suspect]
     Dosage: 1 DF, 1X/DAY
  12. DEDROGYL [Suspect]
     Dosage: 3 GTT, 1X/DAY
  13. CALCIUM CARBONATE [Suspect]
     Dosage: 1 DF, 1X/DAY
  14. UTEPLEX [Suspect]
  15. ACETAMINOPHEN [Suspect]
  16. DESLORATADINE [Suspect]
     Dosage: 1 DF, 1X/DAY
  17. ATROVENT [Suspect]
     Dosage: 0.5 MG, 3X/DAY RESPIRATORY (INHALATION)

REACTIONS (1)
  - Squamous cell carcinoma [Unknown]
